FAERS Safety Report 10561391 (Version 1)
Quarter: 2014Q4

REPORT INFORMATION
  Report Type: Spontaneous
  Country: US (occurrence: US)
  Receive Date: 20141103
  Receipt Date: 20141103
  Transmission Date: 20150529
  Serious: Yes (Other)
  Sender: FDA-Public Use
  Company Number: US-BAUSCH-BL-2014-007698

PATIENT
  Sex: Female
  Weight: 77.1 kg

DRUGS (18)
  1. SYNTHROID [Concomitant]
     Active Substance: LEVOTHYROXINE SODIUM
     Indication: THYROID DISORDER
  2. LIOTHYRONINE SODIUM. [Concomitant]
     Active Substance: LIOTHYRONINE SODIUM
     Indication: THYROID DISORDER
  3. AMBIEN [Concomitant]
     Active Substance: ZOLPIDEM TARTRATE
     Indication: SLEEP DISORDER
  4. NABUMETONE. [Concomitant]
     Active Substance: NABUMETONE
     Indication: ARTHRALGIA
  5. LYRICA [Concomitant]
     Active Substance: PREGABALIN
     Indication: PAIN
  6. SKELAXIN [Concomitant]
     Active Substance: METAXALONE
     Indication: MUSCLE SPASMS
  7. ALBUTEROL. [Concomitant]
     Active Substance: ALBUTEROL
     Indication: ASTHMA
  8. DIAZEPAM. [Suspect]
     Active Substance: DIAZEPAM
     Indication: MUSCLE SPASMS
     Route: 048
     Dates: end: 2014
  9. XYREM [Suspect]
     Active Substance: SODIUM OXYBATE
     Indication: INSOMNIA
     Route: 048
     Dates: start: 201312, end: 2013
  10. XYREM [Suspect]
     Active Substance: SODIUM OXYBATE
     Route: 048
     Dates: start: 201403, end: 2014
  11. VITAMIN D [Concomitant]
     Active Substance: CHOLECALCIFEROL
     Indication: VITAMIN D DECREASED
  12. XYREM [Suspect]
     Active Substance: SODIUM OXYBATE
     Route: 048
     Dates: start: 2014, end: 2014
  13. ROPINIROLE HYDROCHLORIDE. [Concomitant]
     Active Substance: ROPINIROLE HYDROCHLORIDE
     Indication: RESTLESS LEGS SYNDROME
  14. MELATONIN [Concomitant]
     Active Substance: MELATONIN
     Indication: SLEEP DISORDER
  15. DIAZEPAM. [Suspect]
     Active Substance: DIAZEPAM
     Route: 048
     Dates: start: 2014
  16. ATENOLOL. [Concomitant]
     Active Substance: ATENOLOL
     Indication: HEART RATE INCREASED
  17. HYDROCODONE [Concomitant]
     Active Substance: HYDROCODONE
     Indication: PAIN
  18. DOXYLAMINE SUCCINATE [Concomitant]
     Active Substance: DOXYLAMINE SUCCINATE
     Indication: SLEEP DISORDER

REACTIONS (7)
  - Drug withdrawal syndrome [Unknown]
  - Weight increased [Not Recovered/Not Resolved]
  - Muscle spasms [Recovered/Resolved]
  - Off label use [Recovered/Resolved]
  - Dehydration [Recovered/Resolved]
  - Feeling abnormal [Recovered/Resolved]
  - Insomnia [Not Recovered/Not Resolved]

NARRATIVE: CASE EVENT DATE: 2013
